FAERS Safety Report 4295957-6 (Version None)
Quarter: 2004Q1

REPORT INFORMATION
  Report Type: 
  Country: None (occurrence: None)
  Receive Date: 20040211
  Receipt Date: 20040128
  Transmission Date: 20041129
  Serious: Yes (Death)
  Sender: FDA-Public Use
  Company Number: 2004-DE-00463DE

PATIENT
  Sex: Female

DRUGS (3)
  1. SPIRIVA [Suspect]
     Indication: CHRONIC OBSTRUCTIVE AIRWAYS DISEASE
     Dosage: 18 MCG (18 MCG, 1 IN 1 D) IH
     Route: 055
     Dates: start: 20030401
  2. OXYGEN (OXYGEN) (NR) [Concomitant]
  3. ANTIDERPESSANTS (ANTIDEPRESSANTS) (NR) [Concomitant]

REACTIONS (1)
  - DEATH [None]
